FAERS Safety Report 8998979 (Version 1)
Quarter: 2013Q1

REPORT INFORMATION
  Report Type: Spontaneous
  Country: GB (occurrence: GB)
  Receive Date: 20130103
  Receipt Date: 20130103
  Transmission Date: 20140127
  Serious: Yes (Disabling)
  Sender: FDA-Public Use
  Company Number: GB-RANBAXY-2012R1-63651

PATIENT
  Age: 27 Year
  Sex: Male
  Weight: 85 kg

DRUGS (2)
  1. CIPROFLOXACIN [Suspect]
     Indication: PROSTATITIS
     Dosage: UNK
     Route: 048
     Dates: start: 20121019, end: 20121208
  2. DOXYCYCLINE [Concomitant]
     Indication: PRODUCT USED FOR UNKNOWN INDICATION
     Dosage: UNK
     Route: 065

REACTIONS (5)
  - Burning sensation [Not Recovered/Not Resolved]
  - Fatigue [Not Recovered/Not Resolved]
  - Arthritis [Not Recovered/Not Resolved]
  - Hypoaesthesia [Not Recovered/Not Resolved]
  - Paraesthesia [Not Recovered/Not Resolved]
